FAERS Safety Report 23334419 (Version 1)
Quarter: 2023Q4

REPORT INFORMATION
  Report Type: Spontaneous
  Country: GB (occurrence: GB)
  Receive Date: 20231224
  Receipt Date: 20231224
  Transmission Date: 20240109
  Serious: Yes (Death, Life-Threatening, Other)
  Sender: FDA-Public Use
  Company Number: GB-MHRA-MED-202312111700523550-NSJWP

PATIENT
  Age: 70 Year
  Sex: Female

DRUGS (1)
  1. CINACALCET [Suspect]
     Active Substance: CINACALCET
     Indication: Product used for unknown indication
     Dosage: UNK
     Route: 065

REACTIONS (1)
  - Death [Fatal]
